FAERS Safety Report 6877753-6 (Version None)
Quarter: 2010Q3

REPORT INFORMATION
  Report Type: 
  Country: None (occurrence: None)
  Receive Date: 20100727
  Receipt Date: 20100630
  Transmission Date: 20110219
  Serious: No
  Sender: FDA-Public Use
  Company Number: US-ABBOTT-10P-163-0655405-00

PATIENT
  Sex: Female

DRUGS (6)
  1. SYNTHROID [Suspect]
     Indication: HYPOTHYROIDISM
     Dates: start: 20070101, end: 20100201
  2. SYNTHROID [Suspect]
     Dates: start: 20100301
  3. SYNTHROID [Suspect]
     Indication: HYPOTHYROIDISM
     Dates: start: 20100201, end: 20100301
  4. EVISTA [Concomitant]
     Indication: OSTEOPOROSIS
     Dates: start: 20070101, end: 20100201
  5. FORTEO [Concomitant]
     Indication: OSTEOPOROSIS
     Dates: start: 20100201
  6. LIPITOR [Concomitant]
     Indication: BLOOD CHOLESTEROL INCREASED
     Dosage: UNKNOWN

REACTIONS (2)
  - HYPERTHYROIDISM [None]
  - HYPOTHYROIDISM [None]
